FAERS Safety Report 9320856 (Version 5)
Quarter: 2013Q2

REPORT INFORMATION
  Report Type: Spontaneous
  Country: IT (occurrence: None)
  Receive Date: 20130528
  Receipt Date: 20130618
  Transmission Date: 20140414
  Serious: Yes (Other)
  Sender: FDA-Public Use
  Company Number: AUR-APL-2013-04330

PATIENT
  Age: 54 Year
  Sex: Male

DRUGS (3)
  1. RAMIPRIL [Suspect]
     Indication: HYPERTENSION
     Dosage: (5 MG,  1 D) ORAL
     Route: 048
     Dates: start: 20130101, end: 20130411
  2. IRBESARTAN [Suspect]
     Indication: HYPERTENSION
     Dosage: (150 MG, 1 D) ORAL
     Route: 048
     Dates: start: 20130101, end: 20130411
  3. LASIX [Suspect]
     Indication: HYPERTENSION
     Dosage: (2 DOSAGE FORMS, TOTAL), ORAL
     Route: 048
     Dates: start: 20120411, end: 20130411

REACTIONS (6)
  - Abdominal pain upper [None]
  - Hypertension [None]
  - Nausea [None]
  - Drug ineffective [None]
  - Abdominal pain upper [None]
  - Hypertensive crisis [None]
